FAERS Safety Report 7788869-4 (Version None)
Quarter: 2011Q3

REPORT INFORMATION
  Report Type: 
  Country: None (occurrence: None)
  Receive Date: 20110930
  Receipt Date: 20110830
  Transmission Date: 20111222
  Serious: Yes (Hospitalization)
  Sender: FDA-Public Use
  Company Number: JP-ASTRAZENECA-2011SE46564

PATIENT
  Age: 20560 Day
  Sex: Female
  Weight: 64 kg

DRUGS (6)
  1. DEXTROMETHORPHAN HYDROBROMIDE [Concomitant]
     Indication: RESPIRATORY TRACT INFECTION
     Route: 048
     Dates: start: 20100510, end: 20100513
  2. LEVOFLOXACIN [Concomitant]
     Indication: RESPIRATORY TRACT INFECTION
     Route: 048
     Dates: start: 20100506, end: 20100512
  3. NICHOLASE [Concomitant]
     Indication: RESPIRATORY TRACT INFECTION
     Route: 048
     Dates: start: 20100506, end: 20100510
  4. TOCLASE [Concomitant]
     Indication: RESPIRATORY TRACT INFECTION
     Route: 048
     Dates: start: 20100506, end: 20100510
  5. CRESTOR [Suspect]
     Indication: DYSLIPIDAEMIA
     Route: 048
     Dates: start: 20081210, end: 20100510
  6. METHYCOBAL [Concomitant]
     Indication: NEUROPATHY PERIPHERAL
     Route: 048
     Dates: start: 20080220, end: 20100510

REACTIONS (1)
  - INTERSTITIAL LUNG DISEASE [None]
